FAERS Safety Report 7129272-X (Version None)
Quarter: 2010Q4

REPORT INFORMATION
  Report Type: 
  Country: None (occurrence: None)
  Receive Date: 20101130
  Receipt Date: 20101123
  Transmission Date: 20110411
  Serious: No
  Sender: FDA-Public Use
  Company Number: US-PFIZER INC-2010158387

PATIENT
  Sex: Male
  Weight: 70 kg

DRUGS (11)
  1. CELEBREX [Suspect]
     Indication: MYALGIA
     Dosage: 200 MG, 1X/DAY
     Route: 048
     Dates: start: 19900101, end: 20100901
  2. ACTOS [Suspect]
     Indication: TYPE 2 DIABETES MELLITUS
     Dosage: 45 MG, 1X/DAY
     Route: 048
     Dates: start: 20050101, end: 20090101
  3. ACTOS [Suspect]
     Dosage: 30 MG, UNK
     Route: 048
  4. ACETYLSALICYLIC ACID [Concomitant]
     Dosage: 81 MG, 1X/DAY
     Route: 048
     Dates: start: 20000101
  5. BENICAR [Concomitant]
     Indication: HYPERTENSION
     Dosage: 20 MG, 1X/DAY
     Route: 048
     Dates: start: 20070101
  6. CRESTOR [Concomitant]
     Indication: HYPERTENSION
     Dosage: 5 MG, 1X/DAY
     Route: 048
     Dates: start: 20070101
  7. METFORMIN [Concomitant]
     Indication: TYPE 2 DIABETES MELLITUS
     Dosage: 1000 MG, 2X/DAY
     Route: 048
     Dates: start: 20080101
  8. METFORMIN [Concomitant]
     Dosage: 500 MG, 2X/DAY
     Route: 048
  9. LISINOPRIL [Concomitant]
     Indication: HYPERTENSION
     Dosage: 10 MG, 1X/DAY
     Route: 048
     Dates: start: 20080101
  10. ASCORBIC ACID [Concomitant]
     Indication: SUPPLEMENTATION THERAPY
     Dosage: 1000, TWICE DAILY
     Route: 048
     Dates: start: 20070101
  11. VITAMIN D [Concomitant]
     Indication: SUPPLEMENTATION THERAPY
     Dosage: 4000 IU, 1X/DAY
     Route: 048
     Dates: start: 20070101

REACTIONS (4)
  - DIZZINESS [None]
  - FALL [None]
  - HYPOTENSION [None]
  - RASH PRURITIC [None]
